FAERS Safety Report 10030634 (Version 1)
Quarter: 2014Q1

REPORT INFORMATION
  Report Type: Spontaneous
  Country: US (occurrence: US)
  Receive Date: 20140323
  Receipt Date: 20140323
  Transmission Date: 20141002
  Serious: No
  Sender: FDA-Public Use
  Company Number: US-ALLERGAN-1318987US

PATIENT
  Sex: Female

DRUGS (1)
  1. LATISSE 0.03% [Suspect]
     Indication: GROWTH OF EYELASHES
     Dosage: 3 DROPS IN EACH EYE
     Route: 047

REACTIONS (4)
  - Drug administered at inappropriate site [Unknown]
  - Abnormal sensation in eye [Recovered/Resolved]
  - Abnormal sensation in eye [Recovered/Resolved]
  - Headache [Recovered/Resolved]
